FAERS Safety Report 10802063 (Version 1)
Quarter: 2015Q1

REPORT INFORMATION
  Report Type: Spontaneous
  Country: US (occurrence: US)
  Receive Date: 20150217
  Receipt Date: 20150217
  Transmission Date: 20150721
  Serious: Yes (Hospitalization, Other)
  Sender: FDA-Public Use
  Company Number: US-BAYER-2015-017793

PATIENT
  Age: 47 Year
  Sex: Female

DRUGS (4)
  1. CIPROFLOXACIN. [Suspect]
     Active Substance: CIPROFLOXACIN
     Indication: URINARY TRACT INFECTION
     Dosage: UNK
  2. METRONIDAZOLE. [Concomitant]
     Active Substance: METRONIDAZOLE
     Dosage: UNK
     Route: 048
  3. AMPICILLIN [Concomitant]
     Active Substance: AMPICILLIN
     Dosage: UNK
     Route: 042
  4. AMOXICILLIN. [Concomitant]
     Active Substance: AMOXICILLIN
     Dosage: UNK
     Route: 048

REACTIONS (2)
  - Clostridium difficile colitis [Recovered/Resolved]
  - Listeriosis [Recovered/Resolved]
